FAERS Safety Report 13910682 (Version 1)
Quarter: 2017Q3

REPORT INFORMATION
  Report Type: Spontaneous
  Country: US (occurrence: US)
  Receive Date: 20170826
  Receipt Date: 20170826
  Transmission Date: 20171127
  Serious: Yes (Other)
  Sender: FDA-Public Use
  Company Number: None

PATIENT
  Age: 54 Month
  Sex: Male
  Weight: 102.6 kg

DRUGS (1)
  1. CEPHALEXIN 500 MY [Suspect]
     Active Substance: CEPHALEXIN
     Indication: SINUSITIS
     Route: 048
     Dates: start: 20170822

REACTIONS (2)
  - Diarrhoea [None]
  - Malaise [None]

NARRATIVE: CASE EVENT DATE: 20170826
